FAERS Safety Report 9295277 (Version 1)
Quarter: 2013Q2

REPORT INFORMATION
  Report Type: Spontaneous
  Country: US (occurrence: US)
  Receive Date: 20130517
  Receipt Date: 20130517
  Transmission Date: 20140414
  Serious: Yes (Death)
  Sender: FDA-Public Use
  Company Number: US-ENDO PHARMACEUTICALS INC.-PINX20130063

PATIENT
  Sex: Female

DRUGS (1)
  1. PIN-X [Suspect]
     Indication: ENTEROBIASIS
     Dosage: ONE DOSE
     Route: 048

REACTIONS (7)
  - Exposure during pregnancy [None]
  - Stillbirth [None]
  - Rash [Unknown]
  - Dyspnoea [Unknown]
  - Abdominal pain upper [Unknown]
  - Vomiting [Unknown]
  - Diarrhoea [Unknown]
